FAERS Safety Report 6619435-1 (Version None)
Quarter: 2010Q1

REPORT INFORMATION
  Report Type: 
  Country: None (occurrence: None)
  Receive Date: 20100309
  Receipt Date: 20100226
  Transmission Date: 20100710
  Serious: Yes (Other)
  Sender: FDA-Public Use
  Company Number: ES-RANBAXY-2010RR-32034

PATIENT
  Age: 82 Year
  Sex: Female

DRUGS (3)
  1. CIPROFLOXACIN [Suspect]
  2. INSULIN [Concomitant]
  3. FUROSEMID [Concomitant]

REACTIONS (1)
  - ACUTE GENERALISED EXANTHEMATOUS PUSTULOSIS [None]
